FAERS Safety Report 8106373-0 (Version None)
Quarter: 2012Q1

REPORT INFORMATION
  Report Type: 
  Country: None (occurrence: None)
  Receive Date: 20120202
  Receipt Date: 20120127
  Transmission Date: 20120608
  Serious: Yes (Hospitalization)
  Sender: FDA-Public Use
  Company Number: US-CELGENEUS-163-21880-12012911

PATIENT
  Sex: Female

DRUGS (6)
  1. REVLIMID [Suspect]
     Dosage: 10 MILLIGRAM
     Route: 048
     Dates: start: 20110128
  2. PANTOPRAZOLE SODIUM [Concomitant]
     Route: 065
  3. CYCLOBENZAPRINE [Concomitant]
     Route: 065
  4. AMBIEN [Concomitant]
     Route: 065
  5. CLIMARA [Concomitant]
     Route: 065
  6. CALCIUM + D [Concomitant]
     Route: 065

REACTIONS (1)
  - INTESTINAL OBSTRUCTION [None]
